FAERS Safety Report 25766423 (Version 1)
Quarter: 2025Q3

REPORT INFORMATION
  Report Type: Spontaneous
  Country: US (occurrence: None)
  Receive Date: 20250904
  Receipt Date: 20250904
  Transmission Date: 20251020
  Serious: Yes (Death)
  Sender: FDA-CTU
  Company Number: None

PATIENT
  Age: 68 Year
  Sex: Female

DRUGS (2)
  1. TENOFOVIR [Suspect]
     Active Substance: TENOFOVIR
     Indication: Hepatitis B
     Dosage: 300 MG DAILY ORAL
     Route: 048
  2. ENTECAVIR [Suspect]
     Active Substance: ENTECAVIR
     Indication: Hepatitis B
     Dosage: 0.5 MG DAILY ORAL ?
     Route: 048

REACTIONS (1)
  - Neoplasm malignant [None]

NARRATIVE: CASE EVENT DATE: 20250815
